FAERS Safety Report 20107588 (Version 16)
Quarter: 2022Q4

REPORT INFORMATION
  Report Type: Report from Study
  Country: HU (occurrence: None)
  Receive Date: 20211124
  Receipt Date: 20221014
  Transmission Date: 20230113
  Serious: Yes (Hospitalization)
  Sender: FDA-Public Use
  Company Number: HU-Eisai Medical Research-EC-2021-103638

PATIENT
  Age: 50 Year
  Sex: Female
  Weight: 93 kg

DRUGS (10)
  1. LENVATINIB [Suspect]
     Active Substance: LENVATINIB
     Indication: Clear cell renal cell carcinoma
     Route: 048
     Dates: start: 20211027, end: 20211116
  2. LENVATINIB [Suspect]
     Active Substance: LENVATINIB
     Route: 048
     Dates: start: 20211208, end: 20220329
  3. QUAVONLIMAB [Suspect]
     Active Substance: QUAVONLIMAB
     Indication: Clear cell renal cell carcinoma
     Dosage: MK-1308 25MG + PEMBROLIZUMAB 400MG
     Route: 042
     Dates: start: 20211027, end: 20211027
  4. NEBIVOLOL [Concomitant]
     Active Substance: NEBIVOLOL
     Dates: start: 199001
  5. HYDROCHLOROTHIAZIDE [Concomitant]
     Active Substance: HYDROCHLOROTHIAZIDE
     Dates: start: 199001, end: 20211119
  6. VALSARTAN [Concomitant]
     Active Substance: VALSARTAN
     Dates: start: 199001
  7. METFORMIN HYDROCHLORIDE [Concomitant]
     Active Substance: METFORMIN HYDROCHLORIDE
     Dates: start: 201802, end: 20211117
  8. RILMENIDINE [Concomitant]
     Active Substance: RILMENIDINE
     Dates: start: 20211110
  9. ALKCEMA [Concomitant]
     Dates: start: 20211110, end: 20211125
  10. PEMBROLIZUMAB [Suspect]
     Active Substance: PEMBROLIZUMAB

REACTIONS (1)
  - Renal failure [Not Recovered/Not Resolved]

NARRATIVE: CASE EVENT DATE: 20211114
